FAERS Safety Report 6457896-1 (Version None)
Quarter: 2009Q4

REPORT INFORMATION
  Report Type: 
  Country: None (occurrence: None)
  Receive Date: 20091125
  Receipt Date: 20091113
  Transmission Date: 20100525
  Serious: Yes (Life-Threatening, Hospitalization)
  Sender: FDA-Public Use
  Company Number: ES-GENENTECH-291161

PATIENT
  Sex: Male

DRUGS (7)
  1. PLACEBO [Suspect]
     Dosage: 650 MG, UNK
     Route: 042
     Dates: start: 20090706, end: 20090921
  2. RITUXAN [Suspect]
     Indication: DIFFUSE LARGE B-CELL LYMPHOMA
     Dosage: 667 MG, UNK
     Route: 042
     Dates: start: 20090707, end: 20090921
  3. CYCLOPHOSPHAMIDE [Suspect]
     Indication: DIFFUSE LARGE B-CELL LYMPHOMA
     Dosage: 1335 MG, UNK
     Route: 042
     Dates: start: 20090707, end: 20090921
  4. PREDNISONE TAB [Suspect]
     Indication: DIFFUSE LARGE B-CELL LYMPHOMA
     Dosage: 90 MG, UNK
     Route: 048
     Dates: start: 20090708, end: 20090921
  5. DOXORUBICIN HCL [Suspect]
     Indication: DIFFUSE LARGE B-CELL LYMPHOMA
     Dosage: 89 MG, UNK
     Route: 042
     Dates: start: 20090707, end: 20090921
  6. VINCRISTINE [Suspect]
     Indication: DIFFUSE LARGE B-CELL LYMPHOMA
     Dosage: 2 MG, UNK
     Route: 042
     Dates: start: 20090707, end: 20090921
  7. INFLIXIMAB [Suspect]
     Indication: DRUG USE FOR UNKNOWN INDICATION
     Dosage: UNK
     Route: 065
     Dates: start: 20090406, end: 20090519

REACTIONS (2)
  - BRONCHOPNEUMONIA [None]
  - RESPIRATORY FAILURE [None]
